FAERS Safety Report 6341323-9 (Version None)
Quarter: 2009Q3

REPORT INFORMATION
  Report Type: 
  Country: None (occurrence: None)
  Receive Date: 20090902
  Receipt Date: 20090902
  Transmission Date: 20100115
  Serious: Yes (Other)
  Sender: FDA-Public Use
  Company Number: None

PATIENT
  Age: 44 Year
  Sex: Female
  Weight: 71.6683 kg

DRUGS (1)
  1. EFFEXOR [Suspect]

REACTIONS (1)
  - WITHDRAWAL SYNDROME [None]
